FAERS Safety Report 5098863-2 (Version None)
Quarter: 2006Q3

REPORT INFORMATION
  Report Type: 
  Country: None (occurrence: None)
  Receive Date: 20060907
  Receipt Date: 20051026
  Transmission Date: 20061208
  Serious: Yes (Hospitalization)
  Sender: FDA-Public Use
  Company Number: JP-MERCK-0511USA00364

PATIENT
  Age: 85 Year
  Sex: Female

DRUGS (11)
  1. PEPCID RPD [Suspect]
     Indication: GASTRIC ULCER
     Route: 048
     Dates: start: 20050808, end: 20051018
  2. BASEN [Concomitant]
     Route: 048
  3. NORVASC [Concomitant]
     Indication: ESSENTIAL HYPERTENSION
     Route: 048
     Dates: start: 20031015
  4. ADETPHOS [Concomitant]
     Indication: VERTEBROBASILAR INSUFFICIENCY
     Route: 048
     Dates: start: 20041025
  5. MUCOSTA [Concomitant]
     Indication: GASTRIC ULCER
     Route: 048
     Dates: start: 20050214
  6. LENDORMIN [Concomitant]
     Indication: INSOMNIA
     Route: 048
     Dates: start: 20050201
  7. DEPAS [Concomitant]
     Indication: HEADACHE
     Route: 048
     Dates: start: 20050214
  8. BLOPRESS [Concomitant]
     Indication: ESSENTIAL HYPERTENSION
     Route: 048
     Dates: start: 20030903
  9. ALINAMIN F [Concomitant]
     Indication: BACK PAIN
     Route: 048
     Dates: start: 20041025
  10. VITAMIN E NICOTINATE [Concomitant]
     Indication: VERTEBROBASILAR INSUFFICIENCY
     Route: 048
     Dates: start: 20050330
  11. BLADDERON [Concomitant]
     Indication: POLLAKIURIA
     Route: 048
     Dates: start: 20050201

REACTIONS (2)
  - RENAL FAILURE [None]
  - RHABDOMYOLYSIS [None]
